FAERS Safety Report 8801409 (Version 2)
Quarter: 2012Q4

REPORT INFORMATION
  Report Type: 
  Country: US (occurrence: US)
  Receive Date: 20120921
  Receipt Date: 20121102
  Transmission Date: 20130627
  Serious: Yes (Other)
  Sender: FDA-Public Use
  Company Number: US-PFIZER INC-2012233168

PATIENT
  Age: 52 Year
  Sex: Female
  Weight: 83.9 kg

DRUGS (13)
  1. EFFEXOR [Suspect]
     Indication: CHRONIC FATIGUE SYNDROME
     Dosage: UNK
  2. NORVASC [Suspect]
     Indication: BLOOD PRESSURE HIGH
     Dosage: 5 mg, 1x/day
     Route: 048
  3. LIPITOR [Suspect]
     Indication: HIGH CHOLESTEROL
     Dosage: UNK, 1x/day
     Route: 048
  4. LIPITOR [Suspect]
     Dosage: 40 mg, 1x/day
     Route: 048
  5. SYNTHROID [Concomitant]
     Dosage: 50 ug, UNK
  6. PROZAC [Concomitant]
     Dosage: 40 mg, UNK
  7. OMEPRAZOLE [Concomitant]
     Dosage: 20 mg, 1x/day
  8. ASPIRIN [Concomitant]
     Dosage: 81 mg, UNK
  9. IBUPROFEN [Concomitant]
     Dosage: 600 mg, as needed
  10. ALPRAZOLAM [Concomitant]
     Dosage: 0.5 mg, 2x/day
  11. TRAZODONE [Concomitant]
     Dosage: 50 mg, 1x/day
  12. ANTIVERT [Concomitant]
     Dosage: 25 mg, as needed
  13. CYCLOBENZAPRINE [Concomitant]
     Dosage: 10 mg, as needed

REACTIONS (5)
  - Osteoarthritis [Unknown]
  - Hypertension [Unknown]
  - Blood cholesterol increased [Unknown]
  - Drug effect incomplete [Unknown]
  - Off label use [Unknown]
